FAERS Safety Report 9475271 (Version 2)
Quarter: 2013Q4

REPORT INFORMATION
  Report Type: Report from Study
  Country: DE (occurrence: DE)
  Receive Date: 20130826
  Receipt Date: 20131122
  Transmission Date: 20140711
  Serious: Yes (Hospitalization)
  Sender: FDA-Public Use
  Company Number: DE-ROCHE-1265921

PATIENT
  Age: 52 Year
  Sex: Female
  Weight: 57.2 kg

DRUGS (3)
  1. BEVACIZUMAB [Suspect]
     Indication: OVARIAN CANCER
     Dosage: LAST DOSE PRIOR TO SAE 07/AUG/2013
     Route: 042
     Dates: start: 20130515
  2. CARBOPLATIN [Suspect]
     Indication: OVARIAN CANCER
     Dosage: LAST DOSE PRIOR TO SAE 07/AUG/2013
     Route: 042
     Dates: start: 20130423
  3. PACLITAXEL [Suspect]
     Indication: OVARIAN CANCER
     Dosage: LAST DOSE PRIOR TO SAE 07/AUG/2013
     Route: 042
     Dates: start: 20130423

REACTIONS (2)
  - Ileus [Recovered/Resolved]
  - Abdominal pain [Recovered/Resolved]
